FAERS Safety Report 15942055 (Version 1)
Quarter: 2019Q1

REPORT INFORMATION
  Report Type: Spontaneous
  Country: CA (occurrence: CA)
  Receive Date: 20190210
  Receipt Date: 20190210
  Transmission Date: 20190417
  Serious: Yes (Other)
  Sender: FDA-Public Use
  Company Number: CA-TEVA-2019-CA-1008981

PATIENT
  Sex: Female

DRUGS (3)
  1. TAMOXIFEN [Suspect]
     Active Substance: TAMOXIFEN
     Dosage: 20 MILLIGRAM DAILY;
     Route: 065
     Dates: start: 20150525, end: 20170117
  2. LETROZOLE. [Suspect]
     Active Substance: LETROZOLE
     Dosage: 25 MILLIGRAM DAILY;
     Route: 065
     Dates: start: 20170118, end: 20180703
  3. EXEMESTANE. [Suspect]
     Active Substance: EXEMESTANE
     Dosage: 25 MILLIGRAM DAILY;
     Route: 065
     Dates: start: 20180704, end: 20190109

REACTIONS (2)
  - Breast cancer metastatic [Not Recovered/Not Resolved]
  - Treatment failure [Unknown]
